FAERS Safety Report 14350414 (Version 10)
Quarter: 2022Q3

REPORT INFORMATION
  Report Type: Spontaneous
  Country: CZ (occurrence: CZ)
  Receive Date: 20180104
  Receipt Date: 20220715
  Transmission Date: 20221026
  Serious: Yes (Hospitalization, Other)
  Sender: FDA-Public Use
  Company Number: PHHY2017CZ196097

PATIENT
  Age: 22 Year
  Sex: Male

DRUGS (31)
  1. ETOPOSIDE [Suspect]
     Active Substance: ETOPOSIDE
     Indication: Acute lymphocytic leukaemia
     Dosage: UNK, CYCLIC
     Route: 042
     Dates: start: 201506
  2. ETOPOSIDE [Suspect]
     Active Substance: ETOPOSIDE
     Indication: Blastic plasmacytoid dendritic cell neoplasia
  3. METHOTREXATE SODIUM [Suspect]
     Active Substance: METHOTREXATE SODIUM
     Indication: Acute lymphocytic leukaemia
     Dosage: 15 MG, UNKNOWN
     Route: 042
     Dates: start: 201503, end: 201503
  4. METHOTREXATE SODIUM [Suspect]
     Active Substance: METHOTREXATE SODIUM
     Indication: Blastic plasmacytoid dendritic cell neoplasia
     Dosage: 15 MG, CYCLIC (3 PROPHYLACTIC INTRATHECAL APPLICATIONS OF CHEMOTHERAPY)
     Route: 037
     Dates: start: 201504
  5. METHOTREXATE SODIUM [Suspect]
     Active Substance: METHOTREXATE SODIUM
     Dosage: 15 MG, CYCLIC (PROPHYLACTIC INTRATHECAL APPLICATION OF CHEMOTHERAPY)
     Route: 037
     Dates: start: 201506
  6. METHOTREXATE SODIUM [Suspect]
     Active Substance: METHOTREXATE SODIUM
     Dosage: UNK (HIGH-DOSED INDUCTION CHEMOTHERAPY)
     Route: 065
     Dates: start: 201506
  7. DEXAMETHASONE [Suspect]
     Active Substance: DEXAMETHASONE
     Indication: Acute lymphocytic leukaemia
     Dosage: 4 MG, (3 PROPHYLACTIC INTRATHECAL APPLICATIONS OF CHEMOTHERAPY)
     Route: 037
     Dates: start: 201503, end: 201503
  8. DEXAMETHASONE [Suspect]
     Active Substance: DEXAMETHASONE
     Indication: Blastic plasmacytoid dendritic cell neoplasia
     Dosage: 4 MG, CYCLIC (3 PROPHYLACTIC INTRATHECAL APPLICATIONS OF CHEMOTHERAPY)
     Route: 037
     Dates: start: 201504, end: 2015
  9. DEXAMETHASONE [Suspect]
     Active Substance: DEXAMETHASONE
     Dosage: 4 MG, (3 PROPHYLACTIC INTRATHECAL APPLICATIONS OF CHEMOTHERAPY)
     Route: 037
     Dates: start: 201506
  10. DEXAMETHASONE [Suspect]
     Active Substance: DEXAMETHASONE
     Dosage: 16 MG, QD
     Route: 042
  11. DEXAMETHASONE [Suspect]
     Active Substance: DEXAMETHASONE
     Dosage: UNK, CYCLE
     Route: 065
     Dates: start: 201506
  12. CYTARABINE [Suspect]
     Active Substance: CYTARABINE
     Indication: Acute lymphocytic leukaemia
     Dosage: 40 MG, UNKNOWN
     Route: 065
     Dates: start: 201503, end: 201503
  13. CYTARABINE [Suspect]
     Active Substance: CYTARABINE
     Indication: Blastic plasmacytoid dendritic cell neoplasia
     Dosage: 40 MG, CYCLIC (3 PROPHYLACTIC INTRATHECAL APPLICATIONS OF CHEMOTHERAPY)
     Route: 037
     Dates: start: 201504, end: 2015
  14. CYTARABINE [Suspect]
     Active Substance: CYTARABINE
     Dosage: UNK UNK, QCYCLE
     Route: 037
     Dates: start: 201506, end: 2015
  15. CYTARABINE [Suspect]
     Active Substance: CYTARABINE
     Dosage: 3 PROPHYLACTIC INTRATHECAL APPLICATIONS OF CHEMOTHERAPY
     Route: 037
     Dates: start: 201506
  16. DAUNORUBICIN [Suspect]
     Active Substance: DAUNORUBICIN
     Indication: Acute lymphocytic leukaemia
     Dosage: UNK
     Route: 065
     Dates: start: 201503, end: 2015
  17. CYCLOPHOSPHAMIDE [Suspect]
     Active Substance: CYCLOPHOSPHAMIDE
     Indication: Acute lymphocytic leukaemia
     Dosage: UNK
     Route: 065
     Dates: start: 201503, end: 2015
  18. CYCLOPHOSPHAMIDE [Suspect]
     Active Substance: CYCLOPHOSPHAMIDE
     Indication: Blastic plasmacytoid dendritic cell neoplasia
     Dosage: UNK, CYCLIC
     Route: 065
     Dates: start: 201504, end: 2015
  19. VINDESINE [Suspect]
     Active Substance: VINDESINE
     Indication: Acute lymphocytic leukaemia
     Dosage: UNK
     Route: 042
     Dates: start: 201506
  20. VINDESINE [Suspect]
     Active Substance: VINDESINE
     Indication: Blastic plasmacytoid dendritic cell neoplasia
  21. PEGASPARGASE [Suspect]
     Active Substance: PEGASPARGASE
     Indication: Acute lymphocytic leukaemia
     Dosage: UNK
     Route: 065
     Dates: start: 201503, end: 201504
  22. VINCRISTINE [Suspect]
     Active Substance: VINCRISTINE
     Indication: Acute lymphocytic leukaemia
     Dosage: UNK
     Route: 065
     Dates: start: 201503, end: 201504
  23. VINCRISTINE [Suspect]
     Active Substance: VINCRISTINE
     Indication: Blastic plasmacytoid dendritic cell neoplasia
     Dosage: UNK
     Route: 037
     Dates: start: 201506
  24. MERCAPTOPURINE [Suspect]
     Active Substance: MERCAPTOPURINE
     Indication: Blastic plasmacytoid dendritic cell neoplasia
     Dosage: UNK, CYCLIC
     Route: 065
     Dates: start: 201504
  25. MERCAPTOPURINE [Suspect]
     Active Substance: MERCAPTOPURINE
     Indication: Acute lymphocytic leukaemia
  26. THYMOGLOBULINE [Suspect]
     Active Substance: LAPINE T-LYMPHOCYTE IMMUNE GLOBULIN
     Indication: Product used for unknown indication
     Dosage: 4 MG/M2, UNKNOWN
     Route: 042
  27. MELPHALAN [Suspect]
     Active Substance: MELPHALAN
     Indication: Blastic plasmacytoid dendritic cell neoplasia
     Dosage: 140 MG/M2, UNKNOWN
     Route: 042
  28. FLUDARABINE [Suspect]
     Active Substance: FLUDARABINE PHOSPHATE
     Indication: Blastic plasmacytoid dendritic cell neoplasia
     Dosage: 150 MG/M2, UNKNOWN
     Route: 042
  29. MYCOPHENOLATE MOFETIL [Concomitant]
     Active Substance: MYCOPHENOLATE MOFETIL
     Indication: Prophylaxis against graft versus host disease
     Dosage: 30 MG/KG, QD
     Route: 042
  30. CYCLOSPORINE [Concomitant]
     Active Substance: CYCLOSPORINE
     Indication: Prophylaxis against graft versus host disease
     Dosage: 6 MG/KG, QD
     Route: 048
  31. CYCLOSPORINE [Concomitant]
     Active Substance: CYCLOSPORINE
     Dosage: 200-300 NG/ML
     Route: 048

REACTIONS (6)
  - Gastroenteritis clostridial [Recovered/Resolved]
  - Drug-induced liver injury [Recovered/Resolved]
  - Liver disorder [Recovering/Resolving]
  - Odynophagia [Recovered/Resolved]
  - Stomatitis [Recovered/Resolved]
  - Product use in unapproved indication [Unknown]
